FAERS Safety Report 7266260-7 (Version None)
Quarter: 2011Q1

REPORT INFORMATION
  Report Type: 
  Country: None (occurrence: None)
  Receive Date: 20110131
  Receipt Date: 20110117
  Transmission Date: 20110831
  Serious: Yes (Hospitalization)
  Sender: FDA-Public Use
  Company Number: US-ELI_LILLY_AND_COMPANY-US201009001311

PATIENT
  Sex: Female

DRUGS (2)
  1. LASIX [Concomitant]
     Dosage: UNK, UNKNOWN
     Route: 065
  2. FORTEO [Suspect]
     Indication: OSTEOPOROSIS
     Dosage: 20 UG, DAILY (1/D)

REACTIONS (15)
  - RENAL IMPAIRMENT [None]
  - NASAL CONGESTION [None]
  - MOBILITY DECREASED [None]
  - PULSE ABSENT [None]
  - EXCORIATION [None]
  - FATIGUE [None]
  - HEAD INJURY [None]
  - COMPRESSION FRACTURE [None]
  - NASOPHARYNGITIS [None]
  - CONTUSION [None]
  - OEDEMA PERIPHERAL [None]
  - COUGH [None]
  - CARDIAC FAILURE CONGESTIVE [None]
  - COLLAPSE OF LUNG [None]
  - FALL [None]
